FAERS Safety Report 21418311 (Version 3)
Quarter: 2023Q1

REPORT INFORMATION
  Report Type: Report from Study
  Country: US (occurrence: US)
  Receive Date: 20221006
  Receipt Date: 20230327
  Transmission Date: 20230418
  Serious: No
  Sender: FDA-Public Use
  Company Number: US-ABBVIE-4135774

PATIENT
  Age: 78 Year
  Sex: Female
  Weight: 66.224 kg

DRUGS (2)
  1. RINVOQ [Suspect]
     Active Substance: UPADACITINIB
     Indication: Product used for unknown indication
     Route: 048
     Dates: start: 20191111
  2. IV bisphosphonate [Concomitant]
     Indication: Product used for unknown indication

REACTIONS (6)
  - Bronchitis [Unknown]
  - Bronchitis [Unknown]
  - Hordeolum [Unknown]
  - Hypercholesterolaemia [Unknown]
  - Synovial cyst [Unknown]
  - Helicobacter infection [Unknown]

NARRATIVE: CASE EVENT DATE: 20211001
